FAERS Safety Report 4696048-2 (Version None)
Quarter: 2005Q2

REPORT INFORMATION
  Report Type: 
  Country: None (occurrence: None)
  Receive Date: 20050620
  Receipt Date: 20050613
  Transmission Date: 20051028
  Serious: Yes (Death)
  Sender: FDA-Public Use
  Company Number: B0384080A

PATIENT
  Age: 46 Year
  Sex: Female

DRUGS (4)
  1. EPIVIR [Suspect]
     Indication: HIV INFECTION
  2. TENOFOVIR DISOPROXIL FUMA (FORMULATION UNKNOWN) (TENOFOVIR DISOPROXI F [Suspect]
     Indication: HIV INFECTION
  3. ATAZANAVIR (FORMULATION UNKNOWN) (ATAZANAVIR) [Suspect]
     Indication: HIV INFECTION
  4. RITONAVIR (FORMULATION UNKNOWN) (RITONAVIR) [Suspect]
     Indication: HIV INFECTION

REACTIONS (4)
  - DYSPNOEA [None]
  - LACTIC ACIDOSIS [None]
  - TACHYCARDIA [None]
  - TACHYPNOEA [None]
